FAERS Safety Report 4654800-3 (Version None)
Quarter: 2005Q2

REPORT INFORMATION
  Report Type: 
  Country: None (occurrence: None)
  Receive Date: 20050505
  Receipt Date: 20050505
  Transmission Date: 20051028
  Serious: Yes (Life-Threatening)
  Sender: FDA-Public Use
  Company Number: None

PATIENT
  Age: 67 Year
  Sex: Female

DRUGS (2)
  1. ETOMIDATE [Suspect]
     Indication: ANAESTHESIA
     Dosage: ONE TIME  INTRAVENOU
     Route: 042
     Dates: start: 20050214, end: 20050214
  2. DROPERIDOL [Suspect]
     Indication: ANAESTHESIA
     Dosage: ONE TIME    INTRAVENOU
     Route: 042
     Dates: start: 20050214, end: 20050214

REACTIONS (3)
  - BODY TEMPERATURE INCREASED [None]
  - MUSCLE RIGIDITY [None]
  - PCO2 ABNORMAL [None]
